FAERS Safety Report 5209226-0 (Version None)
Quarter: 2007Q1

REPORT INFORMATION
  Report Type: 
  Country: None (occurrence: None)
  Receive Date: 20070116
  Receipt Date: 20070109
  Transmission Date: 20070707
  Serious: Yes (Hospitalization)
  Sender: FDA-Public Use
  Company Number: FR-ROCHE-478012

PATIENT
  Age: 32 Year
  Sex: Male
  Weight: 80 kg

DRUGS (9)
  1. ROCEPHIN [Suspect]
     Dosage: FOMR REPORTED AS INJECTABLE SOLUTION.
     Route: 042
     Dates: start: 20060204, end: 20060208
  2. SUSTIVA [Suspect]
     Indication: DRUG USE FOR UNKNOWN INDICATION
     Route: 048
     Dates: start: 20051009, end: 20060209
  3. RIFINAH [Suspect]
     Indication: DRUG USE FOR UNKNOWN INDICATION
     Route: 048
     Dates: start: 20051009, end: 20060209
  4. CIPROFLOXACIN [Suspect]
     Dosage: FORM REPORTED AS INJECTABLE SOLUTION.
     Route: 042
     Dates: start: 20060204, end: 20060208
  5. TRUVADA [Concomitant]
     Route: 048
     Dates: start: 20051009, end: 20060209
  6. KALETRA [Concomitant]
  7. FRAXODI [Concomitant]
     Dates: end: 20060209
  8. LOVENOX [Concomitant]
  9. TRANXENE [Concomitant]
     Dates: end: 20060209

REACTIONS (7)
  - ALANINE AMINOTRANSFERASE INCREASED [None]
  - ANAEMIA [None]
  - ASPARTATE AMINOTRANSFERASE INCREASED [None]
  - CHOLESTASIS [None]
  - HAEMOLYSIS [None]
  - HYPERBILIRUBINAEMIA [None]
  - JAUNDICE [None]
